FAERS Safety Report 23003995 (Version 4)
Quarter: 2023Q4

REPORT INFORMATION
  Report Type: Spontaneous
  Country: US (occurrence: US)
  Receive Date: 20230928
  Receipt Date: 20231208
  Transmission Date: 20240110
  Serious: Yes (Hospitalization, Other)
  Sender: FDA-Public Use
  Company Number: US-BRISTOL-MYERS SQUIBB COMPANY-2023-135768

PATIENT
  Age: 82 Year
  Sex: Female
  Weight: 77.56 kg

DRUGS (1)
  1. POMALYST [Suspect]
     Active Substance: POMALIDOMIDE
     Indication: Plasma cell myeloma
     Dosage: DAILY FOR 21DAYS. 3 WEEKS ON AND 1 WEEK OFF
     Route: 048

REACTIONS (5)
  - Seizure [Unknown]
  - Flatulence [Not Recovered/Not Resolved]
  - Colitis [Not Recovered/Not Resolved]
  - Gastrooesophageal reflux disease [Not Recovered/Not Resolved]
  - Bacteraemia [Unknown]

NARRATIVE: CASE EVENT DATE: 20230923
